FAERS Safety Report 10245990 (Version 2)
Quarter: 2014Q2

REPORT INFORMATION
  Report Type: Report from Study
  Country: DE (occurrence: DE)
  Receive Date: 20140619
  Receipt Date: 20140619
  Transmission Date: 20141212
  Serious: Yes (Hospitalization)
  Sender: FDA-Public Use
  Company Number: PHHY2013DE140724

PATIENT
  Sex: Male
  Weight: 90 kg

DRUGS (38)
  1. ICL670A [Suspect]
     Indication: MYELODYSPLASTIC SYNDROME
     Dosage: 1750 MG, DAILY
     Dates: start: 20130624
  2. ICL670A [Suspect]
     Dosage: 2000 MG, UNK
     Dates: end: 20140508
  3. ORAL ANTIDIABETICS [Concomitant]
     Dosage: UNK UKN, UNK
  4. RAMIPRIL [Concomitant]
     Dosage: 5 MG, DAILY
  5. AMLODIPINE [Concomitant]
     Dosage: 5 MG, DAILY
  6. NITROLINGUAL [Concomitant]
     Dosage: UNK UKN, UNK
  7. ACETYLSALICYLIC ACID [Concomitant]
     Dosage: 1 DF, QD
  8. PREDNISOLONE [Concomitant]
     Dosage: 20 MG, DAILY
     Dates: start: 20120404
  9. FUROSEMIDE [Concomitant]
     Dosage: 20 MG, DAILY
  10. THYRONAJOD [Concomitant]
     Dosage: 1 DF, QD
  11. METFORMIN [Concomitant]
     Dosage: 1000 MG, QD
     Dates: end: 20131017
  12. XARELTO [Concomitant]
     Dosage: 20 MG, QD
     Dates: end: 20131017
  13. REPAGLINIDE [Concomitant]
     Dosage: 1.5 MG, QD
  14. VIDAZA [Concomitant]
     Dosage: 151 MG, QD
     Dates: start: 20130722
  15. CLOTRIMAZOL [Concomitant]
     Dosage: UNK UKN, UNK
     Dates: start: 20130805
  16. AMPHO MORONAL [Concomitant]
     Dosage: UNK UKN, UNK
     Dates: start: 20130805
  17. CLEXANE [Concomitant]
     Dosage: 0.6 ML, QD
     Route: 058
     Dates: start: 20130729, end: 20130802
  18. IMODIUM [Concomitant]
     Indication: DIARRHOEA
     Dosage: UNK UKN, UNK
     Dates: start: 20130819
  19. ZOFRAN [Concomitant]
     Dosage: 8 MG, UNK
     Route: 042
     Dates: start: 20130903, end: 20130903
  20. ONDANSETRONE ACCORD HEALTHCARE [Concomitant]
     Dosage: 16 MG, PRN
     Dates: start: 20130903
  21. FLUCONAZOLE [Concomitant]
     Dosage: 200 MG, DAILY
     Dates: start: 20131018, end: 20131028
  22. FLUCONAZOLE [Concomitant]
     Dosage: 400 MG, DAILY
     Route: 058
     Dates: start: 20140602, end: 20140613
  23. ANTICOAGULANTS [Concomitant]
     Dosage: UNK UKN, UNK
  24. ASS [Concomitant]
     Dosage: UNK UKN, UNK
  25. FRAXODI [Concomitant]
     Dosage: 0.8 ML, UNK
     Route: 058
     Dates: start: 20131018, end: 20131212
  26. FRAXODI [Concomitant]
     Dosage: 0.8 ML, UNK
     Route: 058
     Dates: start: 20131230, end: 20140121
  27. FRAXODI [Concomitant]
     Dosage: 0.8 ML, UNK
     Route: 058
     Dates: start: 20140226
  28. PANTOZOL [Concomitant]
     Dosage: 20 MG, DAILY
     Dates: start: 20131018
  29. PASSPERTIN [Concomitant]
     Dosage: 30 DRP, TID, DAILY
     Dates: start: 20131017
  30. NEPRESOL [Concomitant]
     Dosage: 100 MG, DAILY
     Dates: start: 20140321
  31. LONOLOX [Concomitant]
     Dosage: 10 MG, DAILY
     Dates: start: 20140327
  32. TAMSULOSIN [Concomitant]
     Dosage: 0.4 MG, DAILY
     Dates: start: 20140329
  33. CLONIDIN [Concomitant]
     Dosage: 450 MG, DAILY
     Dates: start: 20140327
  34. CIPROBAY (CIPROFLOXACIN) [Concomitant]
     Dosage: 500 MG, DAILY
     Dates: start: 20140429, end: 20140505
  35. TAZOBAC [Concomitant]
     Dosage: 13.5 G, DAILY
     Dates: start: 20140318, end: 20140328
  36. TAZOBAC [Concomitant]
     Dosage: 13.5 G, DAILY
     Dates: start: 20140517, end: 20140602
  37. CYKLOKAPRON [Concomitant]
     Dosage: 3000 MG, DAILY
     Dates: start: 20140410
  38. CASPOFUNGIN [Concomitant]
     Dates: end: 20140601

REACTIONS (5)
  - Pneumonia [Recovered/Resolved]
  - Haematoma [Recovered/Resolved]
  - Gastrointestinal haemorrhage [Recovered/Resolved]
  - Nausea [Unknown]
  - Vomiting [Unknown]
